FAERS Safety Report 8335994-5 (Version None)
Quarter: 2012Q2

REPORT INFORMATION
  Report Type: 
  Country: None (occurrence: None)
  Receive Date: 20120504
  Receipt Date: 20120416
  Transmission Date: 20120825
  Serious: No
  Sender: FDA-Public Use
  Company Number: US-PFIZER INC-2012105851

PATIENT
  Sex: Female
  Weight: 71 kg

DRUGS (1)
  1. PENICILLIN G POTASSIUM [Suspect]

REACTIONS (1)
  - DRUG HYPERSENSITIVITY [None]
